FAERS Safety Report 6679083-4 (Version None)
Quarter: 2010Q2

REPORT INFORMATION
  Report Type: 
  Country: None (occurrence: None)
  Receive Date: 20100409
  Receipt Date: 20100324
  Transmission Date: 20101027
  Serious: Yes (Death, Hospitalization)
  Sender: FDA-Public Use
  Company Number: KV201000058

PATIENT
  Age: 61 Year
  Sex: Female
  Weight: 63.5 kg

DRUGS (59)
  1. MORPHINE SULFATE [Suspect]
     Indication: PAIN
     Dosage: 60 MG, BID , ORAL
     Route: 048
  2. MORPHINE SULFATE [Suspect]
     Indication: PAIN
     Dosage: 15 MGQ4H PRN PAIN, ORAL
     Route: 048
     Dates: start: 20080513, end: 20080710
  3. MORPHINE SULFATE [Suspect]
     Indication: PAIN
     Dosage: 10 MG, PRN, Q 4 HOURS, ORAL
     Route: 048
     Dates: start: 20080515, end: 20080710
  4. NEUPOGEN [Concomitant]
  5. DIAZIDE /00413701/ (GLICLAZIDE) [Concomitant]
  6. ATENOLOL [Concomitant]
  7. EFEXOR XR /01233802/ (VENLAFAXINE HYDROCHLORIDE) [Concomitant]
  8. CLARITIN /00917501/ (LORATADINE) [Concomitant]
  9. K-LYTE /0067301/ (CITRIC ACID, CYCLAMIC ACID, POTASSIUM BICARBONATE) [Concomitant]
  10. TRAZODONE HCL [Concomitant]
  11. BACRTIM /0086101/ (SULFAMETHOXAZOLE, TRIMETHOPRIM) [Concomitant]
  12. PROTONIX /01262301/ (PANTOPRAZOLE) [Concomitant]
  13. PHENERGAN /00033001/ (PROMETHAZINE) [Concomitant]
  14. DILAUDID [Concomitant]
  15. MEGACE [Concomitant]
  16. COMPAZINE /00013302/ (PROCHLORPERAZINE EDISYLATE) [Concomitant]
  17. ALEVE [Concomitant]
  18. DIOVAN [Concomitant]
  19. REGLAN /00041901/ (METOCLOPRAMIDE) [Concomitant]
  20. GEMAZ /01215701/ (GEMCITABINE) [Concomitant]
  21. TOPROL-XL [Concomitant]
  22. MOTRIN [Concomitant]
  23. MOBIC [Concomitant]
  24. ZOLOFT [Concomitant]
  25. LEVAQUIN [Concomitant]
  26. VENTOLIN [Concomitant]
  27. SYMBICORT [Concomitant]
  28. DAROVET /00220901/ (DEXTROPROPOXYPHENE HYDROCHLORIDE, PARACETAMOL) [Concomitant]
  29. POTASSIUM CHLORIDE [Concomitant]
  30. MAGNESIUM (MAGNESIUM) [Concomitant]
  31. OXYGEN (OXYGEN) [Concomitant]
  32. XANAX [Concomitant]
  33. TYLENOL 00020001/ (PARACETAMOL) [Concomitant]
  34. BISACODYL (BISACODYL) [Concomitant]
  35. FLUOROURACIL [Concomitant]
  36. ALBUTEROL /00139501/ (SALBUTAMOL) [Concomitant]
  37. LEUCOVORIN /00566701/ (FOLINIC ACID) [Concomitant]
  38. ZOFRAN /00955301/ (ONDANSETRON) [Concomitant]
  39. DECADRON [Concomitant]
  40. ANZEMET [Concomitant]
  41. ARANESP [Concomitant]
  42. PREDNISONE TAB [Concomitant]
  43. VICODIN [Concomitant]
  44. MORPHINE [Concomitant]
  45. ATIVAN [Concomitant]
  46. LOVENOX [Concomitant]
  47. TORADOL [Concomitant]
  48. COUMADIN /000414802/ (WARFARIN SODIUM) [Concomitant]
  49. DEMEROL [Concomitant]
  50. VERSED [Concomitant]
  51. CEFOTETAN [Concomitant]
  52. ENALAPRIL MALEATE [Concomitant]
  53. HEPARIN [Concomitant]
  54. HYDROMORPHINE (HYDROMORPHINE) [Concomitant]
  55. NALOXONE [Concomitant]
  56. LOPRESSOR [Concomitant]
  57. SANDOSTATIN  /00821001/ (OCTREOTIDE) [Concomitant]
  58. DIPHENHYDRAMINE HCL [Concomitant]
  59. PERCOCET /00446701/ (OXYCODONE HYDROCHLORIDEM, OXYCODONE TEREPHTHALATE [Concomitant]

REACTIONS (45)
  - ACUTE PRERENAL FAILURE [None]
  - ANAEMIA [None]
  - ANXIETY [None]
  - ASTHENIA [None]
  - BACK PAIN [None]
  - BRONCHITIS [None]
  - CHEST DISCOMFORT [None]
  - CHOLECYSTITIS ACUTE [None]
  - DECREASED APPETITE [None]
  - DEHYDRATION [None]
  - DEPRESSION [None]
  - DIARRHOEA [None]
  - FACE OEDEMA [None]
  - FATIGUE [None]
  - GASTROOESOPHAGEAL REFLUX DISEASE [None]
  - HAEMATURIA [None]
  - HEADACHE [None]
  - HYPERCHLORAEMIA [None]
  - HYPERTENSION [None]
  - HYPOKALAEMIA [None]
  - HYPOMAGNESAEMIA [None]
  - HYPOTENSION [None]
  - INCREASED UPPER AIRWAY SECRETION [None]
  - INSOMNIA [None]
  - JAUNDICE CHOLESTATIC [None]
  - LETHARGY [None]
  - LIVER FUNCTION TEST ABNORMAL [None]
  - LYMPHADENOPATHY [None]
  - METASTASES TO LUNG [None]
  - METASTASES TO LYMPH NODES [None]
  - MUSCLE SPASMS [None]
  - MUSCULAR WEAKNESS [None]
  - NASOPHARYNGITIS [None]
  - NECK PAIN [None]
  - OEDEMA PERIPHERAL [None]
  - OSTEOARTHRITIS [None]
  - PAIN IN EXTREMITY [None]
  - PANCREATIC CARCINOMA [None]
  - PANCREATITIS ACUTE [None]
  - PLEURAL EFFUSION [None]
  - PRURITUS [None]
  - PULMONARY CONGESTION [None]
  - RESPIRATORY DISTRESS [None]
  - URINARY TRACT INFECTION [None]
  - WEIGHT DECREASED [None]
